FAERS Safety Report 8045325-6 (Version None)
Quarter: 2012Q1

REPORT INFORMATION
  Report Type: 
  Country: None (occurrence: None)
  Receive Date: 20120113
  Receipt Date: 20120110
  Transmission Date: 20120608
  Serious: Yes (Death)
  Sender: FDA-Public Use
  Company Number: US-MEDIMMUNE-MEDI-0014412

PATIENT
  Sex: Female

DRUGS (6)
  1. SYNAGIS [Suspect]
     Route: 030
     Dates: start: 20111209, end: 20111209
  2. POLY-VI-SOL [Concomitant]
  3. DIGOXIN [Concomitant]
  4. ASPIRIN [Concomitant]
  5. LASIX [Concomitant]
  6. CAPITAL/COD [Concomitant]

REACTIONS (1)
  - DEATH [None]
